FAERS Safety Report 4555742-4 (Version None)
Quarter: 2005Q1

REPORT INFORMATION
  Report Type: 
  Country: None (occurrence: None)
  Receive Date: 20050118
  Receipt Date: 20040225
  Transmission Date: 20050727
  Serious: Yes (Hospitalization)
  Sender: FDA-Public Use
  Company Number: A001-002-005988

PATIENT
  Age: 81 Year
  Sex: Female
  Weight: 77.3 kg

DRUGS (6)
  1. ARICEPT [Suspect]
     Indication: DEMENTIA ALZHEIMER'S TYPE
     Dosage: SEE IMAGE
     Route: 048
     Dates: start: 20010501, end: 20010501
  2. ARICEPT [Suspect]
     Indication: DEMENTIA ALZHEIMER'S TYPE
     Dosage: SEE IMAGE
     Route: 048
     Dates: start: 20010501, end: 20020101
  3. ARICEPT [Suspect]
     Indication: DEMENTIA ALZHEIMER'S TYPE
     Dosage: SEE IMAGE
     Route: 048
     Dates: start: 20020101
  4. PINDOLOL [Suspect]
     Indication: ANGINA UNSTABLE
     Dosage: ORAL
     Route: 048
     Dates: start: 19900101, end: 20031214
  5. VASOTEC [Concomitant]
  6. ANTIDEPRESSANT (ANTIDEPRESSANTS) [Concomitant]

REACTIONS (3)
  - DEHYDRATION [None]
  - DEMENTIA ALZHEIMER'S TYPE [None]
  - VOMITING [None]
